FAERS Safety Report 4983667-9 (Version None)
Quarter: 2006Q1

REPORT INFORMATION
  Report Type: 
  Country: None (occurrence: None)
  Receive Date: 20060227
  Receipt Date: 20050120
  Transmission Date: 20060701
  Serious: Yes (Life-Threatening, Hospitalization)
  Sender: FDA-Public Use
  Company Number: WAES 0501USA04182

PATIENT
  Age: 63 Year
  Sex: Female

DRUGS (8)
  1. ZOCOR [Suspect]
     Indication: HYPERCHOLESTEROLAEMIA
     Dosage: 20 MG/HS/PO
     Route: 048
     Dates: start: 19990615, end: 20041227
  2. ACTONEL [Concomitant]
  3. ADVAIR DISKUS 100/50 [Concomitant]
  4. ECOTRIN [Concomitant]
  5. IMDUR [Concomitant]
  6. TOPROL-XL [Concomitant]
  7. ALBUTEROL SULFATE AUTOHALER [Concomitant]
  8. PREDNISONE [Concomitant]

REACTIONS (1)
  - JAUNDICE [None]
